FAERS Safety Report 7167201-3 (Version None)
Quarter: 2010Q4

REPORT INFORMATION
  Report Type: 
  Country: None (occurrence: None)
  Receive Date: 20101216
  Receipt Date: 20101203
  Transmission Date: 20110411
  Serious: Yes (Other)
  Sender: FDA-Public Use
  Company Number: PHHY2010BR82948

PATIENT
  Sex: Female
  Weight: 56 kg

DRUGS (1)
  1. DIOVAN AMLO FIX [Suspect]
     Indication: HYPERTENSION
     Dosage: 1 TABLET (320/5 MG), IN THE MORNING
     Route: 048
     Dates: start: 20100501

REACTIONS (4)
  - CHROMATURIA [None]
  - FAECES DISCOLOURED [None]
  - SWEAT DISCOLOURATION [None]
  - YELLOW SKIN [None]
